FAERS Safety Report 4653570-2 (Version None)
Quarter: 2005Q2

REPORT INFORMATION
  Report Type: 
  Country: None (occurrence: None)
  Receive Date: 20050504
  Receipt Date: 20050425
  Transmission Date: 20051028
  Serious: Yes (Other)
  Sender: FDA-Public Use
  Company Number: GXKR2005S100955

PATIENT
  Age: 74 Year
  Sex: Male

DRUGS (3)
  1. PROPRANOLOL [Suspect]
     Indication: DELUSION
     Dosage: 40 - 120MG,
  2. CYPROTERONE (CYPROTERONE) [Concomitant]
  3. OLANZAPINE (OLANZAPINE) [Concomitant]

REACTIONS (8)
  - BLOOD PRESSURE DIASTOLIC DECREASED [None]
  - COGNITIVE DISORDER [None]
  - DELIRIUM [None]
  - DEPRESSED LEVEL OF CONSCIOUSNESS [None]
  - DISORIENTATION [None]
  - FATIGUE [None]
  - INSOMNIA [None]
  - RESTLESSNESS [None]
